FAERS Safety Report 6569125-9 (Version None)
Quarter: 2010Q1

REPORT INFORMATION
  Report Type: 
  Country: None (occurrence: None)
  Receive Date: 20100203
  Receipt Date: 20100126
  Transmission Date: 20100710
  Serious: Yes (Hospitalization, Other)
  Sender: FDA-Public Use
  Company Number: US-WYE-H13232810

PATIENT
  Sex: Male
  Weight: 122.13 kg

DRUGS (3)
  1. EFFEXOR XR [Suspect]
     Indication: BIPOLAR I DISORDER
     Route: 048
     Dates: start: 20090501, end: 20091213
  2. EFFEXOR XR [Suspect]
     Dosage: BEGAN WEANING
     Route: 048
     Dates: start: 20091214, end: 20100101
  3. ABILIFY [Concomitant]
     Indication: BIPOLAR DISORDER
     Dosage: UNKNOWN
     Dates: start: 20090101

REACTIONS (15)
  - AGGRESSION [None]
  - BIPOLAR I DISORDER [None]
  - CONDITION AGGRAVATED [None]
  - DRUG WITHDRAWAL SYNDROME [None]
  - HALLUCINATION, VISUAL [None]
  - HOMICIDAL IDEATION [None]
  - HYPERHIDROSIS [None]
  - INCREASED APPETITE [None]
  - MIGRAINE [None]
  - NIGHTMARE [None]
  - RESTLESSNESS [None]
  - SUICIDAL IDEATION [None]
  - TREMOR [None]
  - VOMITING [None]
  - WEIGHT INCREASED [None]
